FAERS Safety Report 5212088-9 (Version None)
Quarter: 2007Q1

REPORT INFORMATION
  Report Type: 
  Country: None (occurrence: None)
  Receive Date: 20070118
  Receipt Date: 20070109
  Transmission Date: 20070707
  Serious: Yes (Other)
  Sender: FDA-Public Use
  Company Number: US-ROCHE-477812

PATIENT
  Age: 70 Year
  Sex: Male

DRUGS (2)
  1. XELODA [Suspect]
     Indication: COLON CANCER
     Route: 065
  2. 1 CONCOMITANT DRUG [Concomitant]
     Dosage: DRUG REPORTED AS HYPOGLYCAEMICS (NOS)
     Route: 048

REACTIONS (1)
  - DIABETES MELLITUS [None]
